FAERS Safety Report 20358845 (Version 1)
Quarter: 2022Q1

REPORT INFORMATION
  Report Type: Spontaneous
  Country: DK (occurrence: DK)
  Receive Date: 20220120
  Receipt Date: 20220120
  Transmission Date: 20220423
  Serious: Yes (Other)
  Sender: FDA-Public Use
  Company Number: DK-ALEXION-A201914773

PATIENT
  Age: 15 Year
  Sex: Female

DRUGS (2)
  1. STRENSIQ [Suspect]
     Active Substance: ASFOTASE ALFA
     Dosage: 3 INJECTIONS, QW
     Route: 065
     Dates: start: 201905
  2. STRENSIQ [Suspect]
     Active Substance: ASFOTASE ALFA
     Indication: Hypophosphatasia
     Dosage: 6 INJECTIONS, QW
     Route: 065
     Dates: end: 201905

REACTIONS (1)
  - Pain [Not Recovered/Not Resolved]
